FAERS Safety Report 8993426 (Version 1)
Quarter: 2013Q1

REPORT INFORMATION
  Report Type: Spontaneous
  Country: US (occurrence: US)
  Receive Date: 20130102
  Receipt Date: 20130102
  Transmission Date: 20140127
  Serious: No
  Sender: FDA-Public Use
  Company Number: US-PFIZER INC-2012332641

PATIENT
  Age: 49 Year
  Sex: Male
  Weight: 64.4 kg

DRUGS (2)
  1. VIAGRA [Suspect]
     Indication: ERECTILE DYSFUNCTION
     Dosage: 100 MG, SINGLE
     Dates: start: 2012
  2. VIAGRA [Suspect]
     Indication: HYPOAESTHESIA

REACTIONS (1)
  - Drug ineffective [Unknown]
